FAERS Safety Report 6632678-6 (Version None)
Quarter: 2010Q1

REPORT INFORMATION
  Report Type: 
  Country: None (occurrence: None)
  Receive Date: 20100312
  Receipt Date: 20100301
  Transmission Date: 20100710
  Serious: Yes (Other)
  Sender: FDA-Public Use
  Company Number: TR-ELI_LILLY_AND_COMPANY-TR201003001487

PATIENT
  Age: 38 Year
  Sex: Female

DRUGS (5)
  1. HUMULIN R [Suspect]
     Indication: GESTATIONAL DIABETES
     Dosage: 30 IU, EACH MORNING
     Route: 058
     Dates: start: 20091201
  2. HUMULIN R [Suspect]
     Dosage: 28 IU, OTHER
     Route: 058
     Dates: start: 20091201
  3. HUMULIN R [Suspect]
     Dosage: 22 IU, EACH EVENING
     Route: 058
     Dates: start: 20091201
  4. HUMULIN N [Suspect]
     Indication: GESTATIONAL DIABETES
     Dosage: 16 IU, DAILY (1/D)
     Route: 058
     Dates: start: 20091201
  5. VITAMINS [Concomitant]
     Indication: VITAMIN SUPPLEMENTATION
     Dosage: UNK, DAILY (1/D)
     Dates: start: 20091101

REACTIONS (5)
  - ABORTION THREATENED [None]
  - BLOOD GLUCOSE FLUCTUATION [None]
  - DRUG EXPOSURE DURING PREGNANCY [None]
  - HAEMORRHAGE [None]
  - UTERINE CONTRACTIONS DURING PREGNANCY [None]
